FAERS Safety Report 21853961 (Version 1)
Quarter: 2023Q1

REPORT INFORMATION
  Report Type: Report from Study
  Country: US (occurrence: US)
  Receive Date: 20230112
  Receipt Date: 20230112
  Transmission Date: 20230417
  Serious: No
  Sender: FDA-Public Use
  Company Number: US-ABBVIE-4236502

PATIENT
  Sex: Female

DRUGS (9)
  1. SKYRIZI [Suspect]
     Active Substance: RISANKIZUMAB-RZAA
     Indication: Psoriasis
     Route: 058
     Dates: start: 202004
  2. ALENDRONATE SODIUM 70 MG TABLET [Concomitant]
     Indication: Product used for unknown indication
  3. IBUPROFEN 200 MG CAPSULE [Concomitant]
     Indication: Product used for unknown indication
  4. TYLENOL 325 MG TABLET [Concomitant]
     Indication: Product used for unknown indication
  5. ASPIRIN EC 81 MG TABLET [Concomitant]
     Indication: Product used for unknown indication
  6. EYLEA 2MG/0.05ML SYRINGE [Concomitant]
     Indication: Product used for unknown indication
  7. METHIMAZOLE 5 MG TABLET [Concomitant]
     Indication: Product used for unknown indication
  8. CEPHALEXIN [Concomitant]
     Active Substance: CEPHALEXIN
     Indication: Urinary tract infection
  9. TURMERIC 450MG-50MG CAPSULE [Concomitant]
     Indication: Product used for unknown indication

REACTIONS (1)
  - Urinary tract infection [Unknown]
